FAERS Safety Report 12723443 (Version 6)
Quarter: 2016Q4

REPORT INFORMATION
  Report Type: Spontaneous
  Country: RO (occurrence: RO)
  Receive Date: 20160908
  Receipt Date: 20161028
  Transmission Date: 20170207
  Serious: Yes (Other)
  Sender: FDA-Public Use
  Company Number: RO-SUN PHARMACEUTICAL INDUSTRIES LTD-2016RR-123266

PATIENT
  Age: 95 Year
  Sex: Female

DRUGS (4)
  1. NUROFEN [Concomitant]
     Active Substance: IBUPROFEN
     Indication: PRODUCT USED FOR UNKNOWN INDICATION
     Dosage: 2 DF, UNK
     Route: 065
  2. DICLOFENAC COMPRIMATE GASTRO-REZISTENTE 50 MG [Suspect]
     Active Substance: DICLOFENAC
     Indication: BACK PAIN
     Dosage: 3 DF, UNK
     Route: 065
     Dates: start: 201604
  3. VITAMIN A [Concomitant]
     Active Substance: VITAMIN A
     Indication: VISUAL IMPAIRMENT
     Dosage: 30 PILLS
     Route: 065
  4. LEVOMEPROMAZIN TERAPIA 25 MG COMPRIMATE [Suspect]
     Active Substance: LEVOMEPROMAZINE
     Indication: ACROPHOBIA
     Dosage: 4 DF, DAILY (2 DF IN THE MORNING AND 2 DF IN THE EVENING), PATIENT TOOK 100 PILLS
     Route: 065
     Dates: start: 201603

REACTIONS (4)
  - Respiratory failure [Unknown]
  - Drug ineffective [Unknown]
  - Pruritus [Not Recovered/Not Resolved]
  - Cardiac failure [Unknown]

NARRATIVE: CASE EVENT DATE: 2016
